APPROVED DRUG PRODUCT: PENICILLAMINE
Active Ingredient: PENICILLAMINE
Strength: 250MG
Dosage Form/Route: CAPSULE;ORAL
Application: A213293 | Product #001 | TE Code: AB
Applicant: INVAGEN PHARMACEUTICALS INC
Approved: Aug 19, 2021 | RLD: No | RS: No | Type: RX